FAERS Safety Report 11415916 (Version 1)
Quarter: 2015Q3

REPORT INFORMATION
  Report Type: Spontaneous
  Country: FR (occurrence: FR)
  Receive Date: 20150825
  Receipt Date: 20150825
  Transmission Date: 20151125
  Serious: Yes (Hospitalization)
  Sender: FDA-Public Use
  Company Number: FR-PFIZER INC-2015275157

PATIENT
  Age: 50 Year
  Sex: Female

DRUGS (6)
  1. DALACINE [Suspect]
     Active Substance: CLINDAMYCIN HYDROCHLORIDE
     Indication: ARTHRITIS BACTERIAL
     Dosage: UNK
     Route: 042
     Dates: start: 20150625, end: 20150703
  2. MOPRAL /00661201/ [Concomitant]
     Active Substance: OMEPRAZOLE SODIUM
  3. ORBENINE [Suspect]
     Active Substance: CLOXACILLIN SODIUM
     Indication: ARTHRITIS BACTERIAL
     Dosage: UNK
     Route: 042
     Dates: start: 20150626, end: 20150706
  4. TAZOCILLINE [Suspect]
     Active Substance: PIPERACILLIN SODIUM\TAZOBACTAM SODIUM
     Indication: ARTHRITIS
     Dosage: UNK
     Route: 042
     Dates: start: 20150625, end: 20150625
  5. DAFALGAN [Concomitant]
     Active Substance: ACETAMINOPHEN
  6. BIPROFENID [Concomitant]
     Active Substance: KETOPROFEN

REACTIONS (1)
  - Rash maculo-papular [Recovered/Resolved]

NARRATIVE: CASE EVENT DATE: 20150703
